FAERS Safety Report 17827467 (Version 1)
Quarter: 2020Q2

REPORT INFORMATION
  Report Type: Spontaneous
  Country: FR (occurrence: FR)
  Receive Date: 20200527
  Receipt Date: 20200527
  Transmission Date: 20200714
  Serious: Yes (Other)
  Sender: FDA-Public Use
  Company Number: FR-TEVA-2020-FR-1238853

PATIENT
  Age: 31 Year
  Sex: Female

DRUGS (10)
  1. VOGALENE [Concomitant]
     Active Substance: METOPIMAZINE
  2. COPAXONE [Suspect]
     Active Substance: GLATIRAMER ACETATE
     Indication: RELAPSING-REMITTING MULTIPLE SCLEROSIS
     Route: 058
     Dates: start: 202001
  3. TRIMEBUTINE [Concomitant]
     Active Substance: TRIMEBUTINE
  4. SPASFON [PHLOROGLUCINOL;TRIMETHYLPHLOROGLUCINOL] [Concomitant]
     Active Substance: PHLOROGLUCINOL\1,3,5-TRIMETHOXYBENZENE
  5. CERAZETTE [Concomitant]
  6. DOLIPRANE [Concomitant]
     Active Substance: ACETAMINOPHEN
  7. ARTISIAL [Concomitant]
     Active Substance: CALCIUM CHLORIDE\MAGNESIUM CHLORIDE\POTASSIUM CHLORIDE\POTASSIUM PHOSPHATE, DIBASIC\POTASSIUM PHOSPHATE, MONOBASIC\SODIUM CHLORIDE
  8. DESLORATADINE. [Concomitant]
     Active Substance: DESLORATADINE
  9. INEXIUM [Concomitant]
     Active Substance: ESOMEPRAZOLE
  10. DIAZEPAM. [Concomitant]
     Active Substance: DIAZEPAM

REACTIONS (3)
  - Influenza like illness [Recovered/Resolved]
  - Tendonitis [Not Recovered/Not Resolved]
  - Injection site reaction [Recovered/Resolved]

NARRATIVE: CASE EVENT DATE: 202001
